FAERS Safety Report 14870029 (Version 1)
Quarter: 2018Q2

REPORT INFORMATION
  Report Type: Spontaneous
  Country: US (occurrence: US)
  Receive Date: 20180509
  Receipt Date: 20180509
  Transmission Date: 20180711
  Serious: Yes (Hospitalization)
  Sender: FDA-Public Use
  Company Number: US-OTSUKA-2018_011450

PATIENT
  Sex: Female

DRUGS (1)
  1. SAMSCA [Suspect]
     Active Substance: TOLVAPTAN
     Indication: BLOOD SODIUM ABNORMAL
     Dosage: 2 DF, BID (2 PILLS, TWICE DAILY)
     Route: 048
     Dates: start: 2008

REACTIONS (5)
  - Incorrect dose administered [Unknown]
  - Hospitalisation [Unknown]
  - Blood sodium decreased [Unknown]
  - Confusional state [Unknown]
  - Inappropriate schedule of drug administration [Unknown]
